FAERS Safety Report 9380654 (Version 1)
Quarter: 2013Q3

REPORT INFORMATION
  Report Type: Spontaneous
  Country: US (occurrence: US)
  Receive Date: 20130702
  Receipt Date: 20130702
  Transmission Date: 20140515
  Serious: Yes (Other)
  Sender: FDA-Public Use
  Company Number: CHPA2013US010599

PATIENT
  Age: 84 Year
  Sex: Female

DRUGS (1)
  1. KERI ORIGINAL [Suspect]
     Dosage: UNK, UNK
     Route: 061
     Dates: start: 1988

REACTIONS (2)
  - Emphysema [Not Recovered/Not Resolved]
  - Condition aggravated [Not Recovered/Not Resolved]
